FAERS Safety Report 5642707-4 (Version None)
Quarter: 2008Q1

REPORT INFORMATION
  Report Type: 
  Country: None (occurrence: None)
  Receive Date: 20080228
  Receipt Date: 20080215
  Transmission Date: 20080703
  Serious: Yes (Other)
  Sender: FDA-Public Use
  Company Number: JP-AMGEN-US263587

PATIENT
  Sex: Male

DRUGS (11)
  1. ENBREL [Suspect]
     Indication: RHEUMATOID ARTHRITIS
     Route: 058
     Dates: start: 20071031, end: 20080117
  2. LOXONIN [Concomitant]
     Indication: ANALGESIA
     Route: 048
  3. ISCOTIN [Concomitant]
     Indication: ANTIBIOTIC PROPHYLAXIS
     Route: 048
  4. MUCOSTA [Concomitant]
     Indication: GASTRITIS
     Route: 048
  5. ADEFURONIC [Concomitant]
     Indication: ANALGESIA
     Route: 054
  6. RANITIDINE HYDROCHLORIDE [Concomitant]
     Indication: GASTRITIS
     Route: 048
  7. PREDNISOLONE [Concomitant]
     Indication: RHEUMATOID ARTHRITIS
     Route: 048
  8. BROTIZOLAM [Concomitant]
     Indication: INSOMNIA
     Route: 048
  9. SENNOSIDE A [Concomitant]
     Indication: CONSTIPATION
     Route: 048
  10. RIMATIL [Concomitant]
     Indication: RHEUMATOID ARTHRITIS
     Route: 048
  11. AMBROXOL HYDROCHLORIDE [Concomitant]

REACTIONS (1)
  - COLORECTAL CANCER METASTATIC [None]
